FAERS Safety Report 12181089 (Version 1)
Quarter: 2016Q1

REPORT INFORMATION
  Report Type: Spontaneous
  Country: GB (occurrence: GB)
  Receive Date: 20160315
  Receipt Date: 20160315
  Transmission Date: 20160526
  Serious: Yes (Hospitalization)
  Sender: FDA-Public Use
  Company Number: GB-BAYER-2016-050306

PATIENT
  Age: 75 Year
  Sex: Female

DRUGS (15)
  1. LORATADINE. [Suspect]
     Active Substance: LORATADINE
     Indication: DERMATITIS ALLERGIC
     Dosage: 10 MG, QD
     Route: 048
     Dates: end: 20160219
  2. FELODIPINE. [Concomitant]
     Active Substance: FELODIPINE
  3. ATORVASTATIN [Concomitant]
     Active Substance: ATORVASTATIN
  4. GAVISCON [ALGELDRATE,SODIUM ALGINATE] [Concomitant]
  5. COLECALCIFEROL [Concomitant]
     Active Substance: CHOLECALCIFEROL
  6. METFORMIN [Concomitant]
     Active Substance: METFORMIN HYDROCHLORIDE
  7. ENALAPRIL [Concomitant]
     Active Substance: ENALAPRIL
  8. LANSOPRAZOLE. [Concomitant]
     Active Substance: LANSOPRAZOLE
  9. BUDESONIDE. [Concomitant]
     Active Substance: BUDESONIDE
  10. CO-CODAMOL EFF. [Concomitant]
  11. DOXAZOSIN [Concomitant]
     Active Substance: DOXAZOSIN\DOXAZOSIN MESYLATE
  12. SITAGLIPTIN [Concomitant]
     Active Substance: SITAGLIPTIN
  13. HYPROMELLOSE [Concomitant]
     Active Substance: HYPROMELLOSES
  14. DERMOL [CLOBETASOL PROPIONATE] [Concomitant]
  15. TERBUTALINE [Concomitant]
     Active Substance: TERBUTALINE

REACTIONS (5)
  - Dizziness [Unknown]
  - Bradycardia [Not Recovered/Not Resolved]
  - Syncope [Unknown]
  - Electrocardiogram QT prolonged [Unknown]
  - Cardiac arrest [Unknown]

NARRATIVE: CASE EVENT DATE: 20160201
